FAERS Safety Report 6534879-4 (Version None)
Quarter: 2010Q1

REPORT INFORMATION
  Report Type: 
  Country: None (occurrence: None)
  Receive Date: 20100112
  Receipt Date: 20100105
  Transmission Date: 20100710
  Serious: Yes (Other)
  Sender: FDA-Public Use
  Company Number: CA-JNJFOC-20100103157

PATIENT
  Sex: Male

DRUGS (8)
  1. TYLENOL (CAPLET) [Suspect]
     Route: 048
     Dates: start: 20091228, end: 20091231
  2. TYLENOL (CAPLET) [Suspect]
     Indication: RHEUMATOID ARTHRITIS
     Route: 048
     Dates: start: 20091228, end: 20091231
  3. RITUXAN [Suspect]
     Indication: DRUG USE FOR UNKNOWN INDICATION
  4. PANTOPRAZOLE [Concomitant]
  5. LIPITOR [Concomitant]
  6. APO-HYDROXYQUINE [Concomitant]
  7. APO-FOLIC [Concomitant]
  8. METHOTREXATE [Concomitant]
     Route: 048

REACTIONS (4)
  - HICCUPS [None]
  - MALAISE [None]
  - PRODUCT QUALITY ISSUE [None]
  - VOMITING [None]
